FAERS Safety Report 11280014 (Version 1)
Quarter: 2015Q3

REPORT INFORMATION
  Report Type: Spontaneous
  Country: US (occurrence: US)
  Receive Date: 20150717
  Receipt Date: 20150717
  Transmission Date: 20151125
  Serious: No
  Sender: FDA-Public Use
  Company Number: US-GALDERMA-US15004492

PATIENT
  Age: 18 Year
  Sex: Male

DRUGS (5)
  1. CERAVE CLEANSER [Concomitant]
     Indication: THERAPEUTIC SKIN CARE TOPICAL
     Route: 061
  2. TRETINOIN. [Concomitant]
     Active Substance: TRETINOIN
     Indication: ROSACEA
     Route: 061
  3. SOOLANTRA [Suspect]
     Active Substance: IVERMECTIN
     Indication: ROSACEA
     Dosage: 1%
     Route: 061
     Dates: start: 201503, end: 201505
  4. CERAVE MOISTURIZER WITH SPF 30 [Concomitant]
     Indication: DRY SKIN PROPHYLAXIS
     Route: 061
  5. FINACEA [Concomitant]
     Active Substance: AZELAIC ACID
     Indication: ROSACEA
     Route: 061

REACTIONS (3)
  - Drug ineffective [Not Recovered/Not Resolved]
  - Inappropriate schedule of drug administration [Not Recovered/Not Resolved]
  - Rash [Not Recovered/Not Resolved]

NARRATIVE: CASE EVENT DATE: 201503
